FAERS Safety Report 6656721-3 (Version None)
Quarter: 2010Q1

REPORT INFORMATION
  Report Type: 
  Country: None (occurrence: None)
  Receive Date: 20100329
  Receipt Date: 20100319
  Transmission Date: 20100710
  Serious: Yes (Hospitalization)
  Sender: FDA-Public Use
  Company Number: US-ABBOTT-10P-163-0632562-00

PATIENT
  Sex: Female
  Weight: 61.29 kg

DRUGS (2)
  1. HUMIRA [Suspect]
     Indication: COLITIS ULCERATIVE
     Route: 058
     Dates: start: 20100206, end: 20100206
  2. HUMIRA [Suspect]
     Dates: start: 20100311

REACTIONS (8)
  - ABDOMINAL PAIN [None]
  - COLITIS ULCERATIVE [None]
  - HERPES VIRUS INFECTION [None]
  - HYPOTENSION [None]
  - LOSS OF CONSCIOUSNESS [None]
  - RASH [None]
  - ROTAVIRUS INFECTION [None]
  - SYNCOPE [None]
